FAERS Safety Report 4073213 (Version 2)
Quarter: 2013Q3

REPORT INFORMATION
  Report Type: Spontaneous
  Country: DE (occurrence: DE)
  Receive Date: 20040128
  Receipt Date: 20130702
  Transmission Date: 20140515
  Serious: Yes (Hospitalization, Other)
  Sender: FDA-Public Use
  Company Number: PHBS2004DE00980

PATIENT
  Sex: Male
  Weight: 1.73 kg

DRUGS (1)
  1. DIOVAN [Suspect]
     Dosage: UNK UKN, UNK
     Route: 064

REACTIONS (9)
  - Neonatal anuria [Recovering/Resolving]
  - Premature baby [Unknown]
  - Breech presentation [Unknown]
  - Respiratory distress [Unknown]
  - Hypotonia neonatal [Unknown]
  - Low birth weight baby [Unknown]
  - Renal impairment [Unknown]
  - Apgar score low [Unknown]
  - Foetal exposure during pregnancy [Recovering/Resolving]
